FAERS Safety Report 8022107-2 (Version None)
Quarter: 2012Q1

REPORT INFORMATION
  Report Type: 
  Country: None (occurrence: None)
  Receive Date: 20120104
  Receipt Date: 20111228
  Transmission Date: 20120608
  Serious: Yes (Other)
  Sender: FDA-Public Use
  Company Number: DE-ABBOTT-11P-062-0848972-00

PATIENT
  Sex: Male
  Weight: 86.5 kg

DRUGS (3)
  1. DENOSUMAB [Suspect]
     Indication: OSTEOPOROSIS
     Dates: start: 20110511, end: 20110511
  2. CINACALCET HYDROCHLORIDE [Concomitant]
     Indication: PRODUCT USED FOR UNKNOWN INDICATION
     Route: 048
     Dates: start: 20110603
  3. ZEMPLAR [Suspect]
     Indication: HYPERPARATHYROIDISM SECONDARY
     Dates: start: 20100614, end: 20110603

REACTIONS (1)
  - BLOOD PARATHYROID HORMONE INCREASED [None]
